FAERS Safety Report 12889152 (Version 1)
Quarter: 2016Q4

REPORT INFORMATION
  Report Type: Spontaneous
  Country: CH (occurrence: CH)
  Receive Date: 20161027
  Receipt Date: 20161027
  Transmission Date: 20170207
  Serious: Yes (Other)
  Sender: FDA-Public Use
  Company Number: PHHY2016CH076105

PATIENT
  Sex: Male

DRUGS (6)
  1. CARBOPLATIN SANDOZ [Suspect]
     Active Substance: CARBOPLATIN
     Indication: OESOPHAGEAL CARCINOMA
     Dosage: 50 MG, UNK
     Route: 065
  2. CARBOPLATIN SANDOZ [Suspect]
     Active Substance: CARBOPLATIN
     Dosage: 150 MG, UNK
     Route: 065
  3. TAXOL [Concomitant]
     Active Substance: PACLITAXEL
     Indication: PRODUCT USED FOR UNKNOWN INDICATION
     Dosage: UNK
     Route: 065
     Dates: start: 20160520
  4. TAXOL [Concomitant]
     Active Substance: PACLITAXEL
     Route: 065
     Dates: start: 20160530
  5. CARBOPLATIN SANDOZ [Suspect]
     Active Substance: CARBOPLATIN
     Dosage: 200 MG, ONCE/SINGLE
     Route: 065
     Dates: start: 20160520
  6. CARBOPLATIN SANDOZ [Suspect]
     Active Substance: CARBOPLATIN
     Dosage: 200 MG, ONCE/SINGLE
     Route: 065
     Dates: start: 20160530

REACTIONS (6)
  - Chest discomfort [Recovered/Resolved]
  - Anaphylactic reaction [Recovered/Resolved]
  - Abdominal pain [Recovered/Resolved]
  - Rash [Recovered/Resolved]
  - Flushing [Recovered/Resolved]
  - Nausea [Recovered/Resolved]
